FAERS Safety Report 18913341 (Version 1)
Quarter: 2021Q1

REPORT INFORMATION
  Report Type: Other
  Country: DE (occurrence: DE)
  Receive Date: 20210219
  Receipt Date: 20210219
  Transmission Date: 20210420
  Serious: Yes (Life-Threatening)
  Sender: FDA-Public Use
  Company Number: DE-CELLTRION INC.-2021DE001882

PATIENT

DRUGS (6)
  1. BENDAMUSTIN [Suspect]
     Active Substance: BENDAMUSTINE
     Dosage: 211.7 DF
     Route: 042
     Dates: start: 20140509, end: 20140510
  2. BENDAMUSTIN [Suspect]
     Active Substance: BENDAMUSTINE
     Indication: NON-HODGKIN^S LYMPHOMA
     Dosage: 209 DF
     Route: 042
     Dates: start: 201501
  3. NACL 0,9% [Concomitant]
     Dosage: 1000 ML
  4. BENDAMUSTIN [Suspect]
     Active Substance: BENDAMUSTINE
     Dosage: 220.1 DF
     Route: 042
     Dates: start: 20140411, end: 20140412
  5. GRANISETRON [Concomitant]
     Active Substance: GRANISETRON
     Dosage: 1 MG
  6. RITUXIMAB (UNKNOWN) [Suspect]
     Active Substance: RITUXIMAB
     Indication: NON-HODGKIN^S LYMPHOMA

REACTIONS (1)
  - CD4 lymphocytes decreased [Unknown]
